FAERS Safety Report 12872788 (Version 5)
Quarter: 2016Q4

REPORT INFORMATION
  Report Type: Report from Study
  Country: US (occurrence: US)
  Receive Date: 20161021
  Receipt Date: 20161209
  Transmission Date: 20170207
  Serious: Yes (Hospitalization, Other)
  Sender: FDA-Public Use
  Company Number: US-PFIZER INC-2016477934

PATIENT
  Age: 14 Year
  Sex: Female
  Weight: 32.6 kg

DRUGS (20)
  1. IRINOTECAN HCL [Suspect]
     Active Substance: IRINOTECAN HYDROCHLORIDE
     Indication: NEOPLASM
     Dosage: 62 MG, DAILY (DAYS 2-6)
     Dates: start: 20160908, end: 20160911
  2. TALAZOPARIB [Suspect]
     Active Substance: TALAZOPARIB
     Dosage: 500 UG TWICE DAILY(DAY1)
     Dates: start: 20161019, end: 20161019
  3. TALAZOPARIB [Suspect]
     Active Substance: TALAZOPARIB
     Dosage: 650 UG, 1X/DAY, DAY 2-6
     Dates: start: 20161020
  4. ONDANSETRON [Concomitant]
     Active Substance: ONDANSETRON
     Indication: NAUSEA
     Dosage: 6 MG, PRN
     Route: 048
     Dates: start: 20160724
  5. NEUTRA-PHOS [Concomitant]
     Active Substance: POTASSIUM PHOSPHATE, DIBASIC\POTASSIUM PHOSPHATE, MONOBASIC\SODIUM PHOSPHATE, DIBASIC\SODIUM PHOSPHATE, MONOBASIC
     Dosage: 2 PACKETS
     Route: 048
     Dates: start: 20160826, end: 20160913
  6. DEXTROMETHORPHAN-GUAIFENESIN [Concomitant]
     Active Substance: DEXTROMETHORPHAN\GUAIFENESIN
     Indication: COUGH
     Dosage: 10 ML, Q6H
     Route: 048
     Dates: start: 20160829, end: 20160905
  7. ZYRTEC [Concomitant]
     Active Substance: CETIRIZINE HYDROCHLORIDE
     Indication: HYPERSENSITIVITY
     Dosage: 5 MG, PRN
     Route: 048
     Dates: start: 20160727
  8. TALAZOPARIB [Suspect]
     Active Substance: TALAZOPARIB
     Indication: NEOPLASM
     Dosage: 500 UG, TWICE DAILY (DAY 1)
     Dates: start: 20160907, end: 20160907
  9. MORPHINE [Concomitant]
     Active Substance: MORPHINE
     Indication: PAIN
     Dosage: 15 MG, PRN
     Route: 048
     Dates: start: 20160724
  10. LORAZEPAM. [Concomitant]
     Active Substance: LORAZEPAM
     Indication: NAUSEA
     Dosage: 0.5 MG, PRN
     Route: 048
     Dates: start: 20160728
  11. PROPRANOLOL [Concomitant]
     Active Substance: PROPRANOLOL\PROPRANOLOL HYDROCHLORIDE
     Dosage: 20 MG, SINGLE
     Route: 048
     Dates: start: 20160826, end: 20160830
  12. TALAZOPARIB [Suspect]
     Active Substance: TALAZOPARIB
     Dosage: 750 UG ONCE DAILY (DAY 2-6)
     Dates: start: 20160908, end: 20160911
  13. DIPHENHYDRAMINE. [Concomitant]
     Active Substance: DIPHENHYDRAMINE
     Dosage: 35MG (0.75 ML) ONCE
     Route: 042
     Dates: start: 20160910, end: 20160910
  14. LORAZEPAM. [Concomitant]
     Active Substance: LORAZEPAM
     Indication: ANXIETY
  15. PEDIASURE CHOCOLATE [Concomitant]
     Dosage: UNK, AS NEEDED
     Dates: start: 20160819
  16. HEPARIN FLUSH [Concomitant]
     Active Substance: HEPARIN SODIUM
     Dosage: UNK
     Dates: start: 20160819
  17. IRINOTECAN HCL [Suspect]
     Active Substance: IRINOTECAN HYDROCHLORIDE
     Dosage: 48 MG ONCE DAILY (DAYS 2-6)
     Dates: start: 20161020
  18. DIPHENHYDRAMINE. [Concomitant]
     Active Substance: DIPHENHYDRAMINE
     Indication: NAUSEA
     Dosage: 25 MG, PRN
     Route: 048
     Dates: start: 20160718
  19. CEFIXIME. [Concomitant]
     Active Substance: CEFIXIME
     Indication: PROPHYLAXIS
     Dosage: 296 MG, UNK
     Route: 048
     Dates: start: 20160906, end: 20160912
  20. POTASSIUM CHLORIDE. [Concomitant]
     Active Substance: POTASSIUM CHLORIDE
     Dosage: 1 TAB, ONCE
     Route: 048

REACTIONS (6)
  - Febrile neutropenia [Recovered/Resolved]
  - Colitis [Recovered/Resolved]
  - Diarrhoea [Recovered/Resolved]
  - Colitis [Recovered/Resolved]
  - Febrile neutropenia [Recovered/Resolved]
  - Sinus tachycardia [Recovered/Resolved]

NARRATIVE: CASE EVENT DATE: 20160911
